FAERS Safety Report 26190205 (Version 1)
Quarter: 2025Q4

REPORT INFORMATION
  Report Type: Report from Study
  Country: US (occurrence: None)
  Receive Date: 20251223
  Receipt Date: 20251223
  Transmission Date: 20260117
  Serious: Yes (Death)
  Sender: UCB
  Company Number: US-UCBSA-2025080570

PATIENT
  Age: 65 Year

DRUGS (1)
  1. ROTIGOTINE [Suspect]
     Active Substance: ROTIGOTINE
     Dosage: 8 MILLIGRAM 1 PATCH, ONCE DAILY (QD)

REACTIONS (1)
  - Parkinson^s disease [Fatal]
